FAERS Safety Report 5853540-2 (Version None)
Quarter: 2008Q3

REPORT INFORMATION
  Report Type: 
  Country: None (occurrence: None)
  Receive Date: 20080822
  Receipt Date: 20080819
  Transmission Date: 20090109
  Serious: Yes (Death, Hospitalization)
  Sender: FDA-Public Use
  Company Number: US-JNJFOC-20080204672

PATIENT
  Sex: Female

DRUGS (2)
  1. DOXIL [Suspect]
     Dosage: CYCLE 3
     Route: 042
  2. DOXIL [Suspect]
     Indication: OVARIAN CANCER
     Dosage: 40MG/M2
     Route: 042

REACTIONS (2)
  - INTESTINAL OBSTRUCTION [None]
  - OVARIAN CANCER [None]
